FAERS Safety Report 6876043-5 (Version None)
Quarter: 2010Q3

REPORT INFORMATION
  Report Type: 
  Country: None (occurrence: None)
  Receive Date: 20100727
  Receipt Date: 20100722
  Transmission Date: 20110219
  Serious: Yes (Hospitalization, Other)
  Sender: FDA-Public Use
  Company Number: US-MERCK-1007USA02871

PATIENT
  Age: 37 Year
  Sex: Male

DRUGS (8)
  1. JANUVIA [Suspect]
     Indication: TYPE 2 DIABETES MELLITUS
     Route: 048
     Dates: start: 20090604, end: 20100722
  2. ASPIRIN [Concomitant]
     Route: 065
  3. INSULIN DETEMIR [Concomitant]
     Route: 065
  4. UROXATRAL [Concomitant]
     Route: 065
  5. LORATADINE [Concomitant]
     Route: 065
  6. TELMISARTAN [Concomitant]
     Route: 065
  7. METFORMIN [Concomitant]
     Route: 065
  8. PRAVASTATIN SODIUM [Concomitant]
     Route: 065

REACTIONS (2)
  - INAPPROPRIATE SCHEDULE OF DRUG ADMINISTRATION [None]
  - NEPHROLITHIASIS [None]
